FAERS Safety Report 6407459-9 (Version None)
Quarter: 2009Q4

REPORT INFORMATION
  Report Type: 
  Country: None (occurrence: None)
  Receive Date: 20091020
  Receipt Date: 20091015
  Transmission Date: 20100525
  Serious: Yes (Hospitalization)
  Sender: FDA-Public Use
  Company Number: US-BRISTOL-MYERS SQUIBB COMPANY-14819262

PATIENT
  Age: 67 Year
  Sex: Female
  Weight: 105 kg

DRUGS (9)
  1. TAXOL [Suspect]
     Indication: NON-SMALL CELL LUNG CANCER
     Route: 042
     Dates: start: 20090917
  2. CARBOPLATIN [Suspect]
     Indication: NON-SMALL CELL LUNG CANCER
     Route: 042
     Dates: start: 20090917
  3. CP-751,871 [Suspect]
     Indication: NON-SMALL CELL LUNG CANCER
     Route: 042
     Dates: start: 20090917
  4. NEULASTA [Concomitant]
  5. ADVAIR DISKUS 100/50 [Concomitant]
  6. DEXAMETHASONE 0.5MG TAB [Concomitant]
  7. LISINOPRIL [Concomitant]
  8. NIFEDIPINE [Concomitant]
  9. SPIRIVA [Concomitant]

REACTIONS (2)
  - DYSPNOEA [None]
  - PYREXIA [None]
